FAERS Safety Report 9917596 (Version 1)
Quarter: 2014Q1

REPORT INFORMATION
  Report Type: Spontaneous
  Country: BR (occurrence: BR)
  Receive Date: 20140221
  Receipt Date: 20140221
  Transmission Date: 20141002
  Serious: Yes (Other)
  Sender: FDA-Public Use
  Company Number: BR-PFIZER INC-2014047538

PATIENT
  Age: 90 Year
  Sex: Male
  Weight: 60 kg

DRUGS (4)
  1. LIPITOR [Suspect]
     Dosage: 10 MG DAILY
     Route: 048
     Dates: start: 20080201
  2. LYRICA [Suspect]
     Dosage: 75 MG EVERY 12 HOURS
     Route: 048
     Dates: start: 201402
  3. SECOTEX [Concomitant]
     Indication: PROSTATIC DISORDER
     Dosage: ONE TABLET DAILY
     Dates: start: 2004
  4. CONCOR [Concomitant]
     Indication: CARDIAC DISORDER
     Dosage: ONE TABLET ON ALTERNATE DAYS
     Dates: start: 201208

REACTIONS (1)
  - Lymphoma [Unknown]
